FAERS Safety Report 7866667-0 (Version None)
Quarter: 2011Q4

REPORT INFORMATION
  Report Type: 
  Country: None (occurrence: None)
  Receive Date: 20111028
  Receipt Date: 20110722
  Transmission Date: 20120403
  Serious: No
  Sender: FDA-Public Use
  Company Number: US-GLAXOSMITHKLINE-A0938024A

PATIENT
  Age: 66 Year
  Sex: Male

DRUGS (3)
  1. ADVAIR DISKUS 100/50 [Suspect]
     Indication: CHRONIC OBSTRUCTIVE PULMONARY DISEASE
     Dosage: 1PUFF TWICE PER DAY
     Route: 055
     Dates: start: 20080801
  2. OXYGEN [Concomitant]
  3. FLOMAX [Suspect]
     Route: 065
     Dates: start: 20110101

REACTIONS (4)
  - PRURITUS [None]
  - DRUG INTERACTION [None]
  - SKIN EXFOLIATION [None]
  - ANHIDROSIS [None]
